FAERS Safety Report 22064477 (Version 1)
Quarter: 2023Q1

REPORT INFORMATION
  Report Type: Spontaneous
  Country: CN (occurrence: CN)
  Receive Date: 20230306
  Receipt Date: 20230306
  Transmission Date: 20230418
  Serious: Yes (Other)
  Sender: FDA-Public Use
  Company Number: CN-PFIZER INC-PV202300040262

PATIENT
  Age: 67 Year
  Sex: Female
  Weight: 54 kg

DRUGS (2)
  1. SOLU-MEDROL [Suspect]
     Active Substance: METHYLPREDNISOLONE SODIUM SUCCINATE
     Indication: Pneumonia
     Dosage: 40 MG, 2X/DAY
     Route: 042
     Dates: start: 20230106, end: 20230109
  2. SOLU-MEDROL [Suspect]
     Active Substance: METHYLPREDNISOLONE SODIUM SUCCINATE
     Indication: Dyspnoea
     Dosage: 40 MG, 1X/DAY
     Route: 042
     Dates: start: 20230109, end: 20230113

REACTIONS (1)
  - Blood glucose fluctuation [Recovering/Resolving]

NARRATIVE: CASE EVENT DATE: 20230106
